FAERS Safety Report 22174489 (Version 1)
Quarter: 2023Q2

REPORT INFORMATION
  Report Type: Spontaneous
  Country: JP (occurrence: JP)
  Receive Date: 20230405
  Receipt Date: 20230405
  Transmission Date: 20230721
  Serious: Yes (Hospitalization, Other)
  Sender: FDA-Public Use
  Company Number: JP-RECORDATI-2023001933

PATIENT

DRUGS (5)
  1. OSILODROSTAT [Suspect]
     Active Substance: OSILODROSTAT
     Indication: Cushing^s syndrome
     Dosage: 2 MILLIGRAM
  2. OSILODROSTAT [Suspect]
     Active Substance: OSILODROSTAT
     Dosage: 4 MILLIGRAM
  3. OSILODROSTAT [Suspect]
     Active Substance: OSILODROSTAT
     Dosage: 16 MILLIGRAM
  4. OSILODROSTAT [Suspect]
     Active Substance: OSILODROSTAT
     Dosage: 22 MILLIGRAM
  5. OSILODROSTAT [Suspect]
     Active Substance: OSILODROSTAT
     Dosage: 6 MILLIGRAM

REACTIONS (3)
  - Cortisol free urine increased [Recovered/Resolved]
  - Hyperglycaemia [Unknown]
  - Hypokalaemia [Unknown]
